FAERS Safety Report 18466938 (Version 1)
Quarter: 2020Q4

REPORT INFORMATION
  Report Type: Spontaneous
  Country: JP (occurrence: JP)
  Receive Date: 20201105
  Receipt Date: 20201105
  Transmission Date: 20210114
  Serious: Yes (Other)
  Sender: FDA-Public Use
  Company Number: JP-TITAN PHARMACEUTICALS-2020TAN00064

PATIENT
  Sex: Male

DRUGS (1)
  1. BUPRENORPHINE. [Suspect]
     Active Substance: BUPRENORPHINE
     Dosage: 0.001 MG/KG, ONCE, OVER 10 MIN
     Route: 042

REACTIONS (1)
  - Bradycardia [Unknown]
